FAERS Safety Report 18818112 (Version 1)
Quarter: 2021Q1

REPORT INFORMATION
  Report Type: Other
  Country: US (occurrence: US)
  Receive Date: 20210201
  Receipt Date: 20210201
  Transmission Date: 20210419
  Serious: Yes (Other)
  Sender: FDA-Public Use
  Company Number: US-DENTSPLY-2021SCDP000024

PATIENT
  Age: 32 Year
  Sex: Female

DRUGS (4)
  1. SALINE [SODIUM CHLORIDE] [Concomitant]
     Active Substance: SODIUM CHLORIDE
     Indication: EPIDURAL ANAESTHESIA
     Dosage: 5 MILLILITER, TOTAL
     Route: 008
  2. LIDOCAINE. [Suspect]
     Active Substance: LIDOCAINE
     Indication: EPIDURAL ANAESTHESIA
     Dosage: 2 MILLILITER, TOTAL, LIDOCAINE 1%
     Route: 008
  3. LIDOCAINE. [Suspect]
     Active Substance: LIDOCAINE
     Dosage: 3 MILLILITER, TOTAL, LIDOCAINE 1.5%
     Route: 008
  4. EPINEPHRINE. [Concomitant]
     Active Substance: EPINEPHRINE
     Indication: EPIDURAL ANAESTHESIA
     Dosage: UNK
     Route: 008

REACTIONS (4)
  - Hypotension [None]
  - Nausea [None]
  - Dizziness [None]
  - Maternal exposure during delivery [None]
